FAERS Safety Report 6897916-3 (Version None)
Quarter: 2010Q3

REPORT INFORMATION
  Report Type: 
  Country: None (occurrence: None)
  Receive Date: 20100802
  Receipt Date: 20070813
  Transmission Date: 20110219
  Serious: No
  Sender: FDA-Public Use
  Company Number: US-PFIZER INC-2007068149

PATIENT
  Sex: Female
  Weight: 125 kg

DRUGS (6)
  1. LYRICA [Suspect]
     Indication: FIBROMYALGIA
     Dates: start: 20070809, end: 20070809
  2. LISINOPRIL [Concomitant]
     Indication: HYPERTENSION
  3. LASIX [Concomitant]
     Indication: JOINT SWELLING
  4. HYDROCODONE BITARTRATE [Concomitant]
  5. RESTORIL [Concomitant]
  6. FLEXERIL [Concomitant]

REACTIONS (4)
  - EYE SWELLING [None]
  - OEDEMA PERIPHERAL [None]
  - PARAESTHESIA [None]
  - VISUAL IMPAIRMENT [None]
